FAERS Safety Report 7937618-5 (Version None)
Quarter: 2011Q4

REPORT INFORMATION
  Report Type: 
  Country: None (occurrence: None)
  Receive Date: 20111123
  Receipt Date: 20111114
  Transmission Date: 20120403
  Serious: Yes (Other)
  Sender: FDA-Public Use
  Company Number: BR-ABBOTT-11P-020-0873611-00

PATIENT
  Sex: Male
  Weight: 52 kg

DRUGS (3)
  1. PHENOBARBITAL TAB [Concomitant]
     Indication: PRODUCT USED FOR UNKNOWN INDICATION
     Dates: start: 20110301
  2. DEPAKENE [Suspect]
     Indication: CONVULSION
     Route: 048
  3. EDHANOL [Suspect]
     Indication: CONVULSION
     Route: 048

REACTIONS (3)
  - OSTEOARTHRITIS [None]
  - CONFUSIONAL STATE [None]
  - ANAEMIA [None]
